FAERS Safety Report 15757076 (Version 1)
Quarter: 2018Q4

REPORT INFORMATION
  Report Type: Spontaneous
  Country: US (occurrence: US)
  Receive Date: 20181224
  Receipt Date: 20181224
  Transmission Date: 20190205
  Serious: Yes (Other)
  Sender: FDA-Public Use
  Company Number: US-UNITED THERAPEUTICS-UNT-2018-021244

PATIENT
  Age: 55 Year
  Sex: Female

DRUGS (5)
  1. SELEXIPAG [Concomitant]
     Active Substance: SELEXIPAG
     Indication: SYSTEMIC SCLERODERMA
  2. TYVASO [Suspect]
     Active Substance: TREPROSTINIL
     Indication: SYSTEMIC SCLERODERMA
  3. WARFARIN [Suspect]
     Active Substance: WARFARIN
     Indication: PRODUCT USED FOR UNKNOWN INDICATION
     Route: 065
  4. SELEXIPAG [Concomitant]
     Active Substance: SELEXIPAG
     Indication: PULMONARY ARTERIAL HYPERTENSION
     Dosage: 200 ?G, BID
     Route: 048
  5. TYVASO [Suspect]
     Active Substance: TREPROSTINIL
     Indication: PULMONARY ARTERIAL HYPERTENSION

REACTIONS (1)
  - Muscle haemorrhage [Recovered/Resolved]
